FAERS Safety Report 24758563 (Version 1)
Quarter: 2024Q4

REPORT INFORMATION
  Report Type: Spontaneous
  Country: CN (occurrence: CN)
  Receive Date: 20241220
  Receipt Date: 20241220
  Transmission Date: 20250114
  Serious: Yes (Hospitalization)
  Sender: REGENERON
  Company Number: CN-SANOFI-02337941

PATIENT
  Age: 64 Year
  Sex: Female

DRUGS (1)
  1. PRALUENT [Suspect]
     Active Substance: ALIROCUMAB
     Indication: Blood triglycerides increased
     Dosage: 75 MG, QOW
     Dates: start: 20240915

REACTIONS (4)
  - Hospitalisation [Unknown]
  - Blood triglycerides abnormal [Unknown]
  - Accidental exposure to product [Unknown]
  - Exposure via skin contact [Unknown]

NARRATIVE: CASE EVENT DATE: 20240101
